FAERS Safety Report 5060941-1 (Version None)
Quarter: 2006Q3

REPORT INFORMATION
  Report Type: 
  Country: None (occurrence: None)
  Receive Date: 20060725
  Receipt Date: 20060621
  Transmission Date: 20061208
  Serious: Yes (Hospitalization)
  Sender: FDA-Public Use
  Company Number: DE-SANOFI-SYNTHELABO-A04200600644

PATIENT
  Sex: Female
  Weight: 79 kg

DRUGS (5)
  1. FLUOROURACIL [Suspect]
     Indication: COLON CANCER
     Route: 040
     Dates: start: 20060503, end: 20060503
  2. FLUOROURACIL [Suspect]
     Route: 041
     Dates: start: 20060503, end: 20060504
  3. ATACAND [Concomitant]
     Indication: HYPERTENSION
     Dosage: UNK
     Route: 048
  4. ELOXATIN [Suspect]
     Indication: COLON CANCER
     Route: 041
     Dates: start: 20060410, end: 20060419
  5. METOPROLOL TARTRATE [Concomitant]
     Indication: HYPERTENSION
     Dosage: 50 MG
     Route: 048

REACTIONS (7)
  - C-REACTIVE PROTEIN INCREASED [None]
  - CHILLS [None]
  - DIARRHOEA [None]
  - GENERAL PHYSICAL HEALTH DETERIORATION [None]
  - NAUSEA [None]
  - PYREXIA [None]
  - VOMITING [None]
